FAERS Safety Report 12244729 (Version 1)
Quarter: 2016Q2

REPORT INFORMATION
  Report Type: Spontaneous
  Country: None (occurrence: None)
  Receive Date: 20160406
  Receipt Date: 20160406
  Transmission Date: 20160815
  Serious: Yes (Other)
  Sender: FDA-Public Use
  Company Number: None

PATIENT
  Age: 55 Year
  Sex: Female

DRUGS (1)
  1. SUTENT [Suspect]
     Active Substance: SUNITINIB MALATE
     Indication: PRODUCT USED FOR UNKNOWN INDICATION
     Route: 048
     Dates: start: 201509

REACTIONS (5)
  - Oral pain [None]
  - Nausea [None]
  - Stomatitis [None]
  - Dysgeusia [None]
  - Decreased appetite [None]

NARRATIVE: CASE EVENT DATE: 20160404
